FAERS Safety Report 7415652-1 (Version None)
Quarter: 2011Q2

REPORT INFORMATION
  Report Type: 
  Country: None (occurrence: None)
  Receive Date: 20110414
  Receipt Date: 20110406
  Transmission Date: 20111010
  Serious: Yes (Other)
  Sender: FDA-Public Use
  Company Number: GB-CUBIST-2011S1000267

PATIENT

DRUGS (2)
  1. CUBICIN [Suspect]
     Indication: STAPHYLOCOCCAL BACTERAEMIA
     Route: 042
  2. CUBICIN [Suspect]
     Indication: ENDOCARDITIS
     Route: 042

REACTIONS (1)
  - DRUG LEVEL DECREASED [None]
